FAERS Safety Report 7217782-6 (Version None)
Quarter: 2011Q1

REPORT INFORMATION
  Report Type: 
  Country: None (occurrence: None)
  Receive Date: 20110110
  Receipt Date: 20110103
  Transmission Date: 20110831
  Serious: Yes (Other)
  Sender: FDA-Public Use
  Company Number: PHHY2010FR85366

PATIENT
  Sex: Female
  Weight: 72 kg

DRUGS (1)
  1. LAMISIL [Suspect]
     Indication: ONYCHOMYCOSIS
     Dosage: 1 DF, DAILY
     Route: 048
     Dates: start: 20091030, end: 20101220

REACTIONS (6)
  - THYROID DISORDER [None]
  - ASTHENIA [None]
  - BLOOD THYROID STIMULATING HORMONE DECREASED [None]
  - HYPOTHYROIDISM [None]
  - THYROXINE INCREASED [None]
  - THYROIDITIS [None]
